FAERS Safety Report 19519514 (Version 12)
Quarter: 2023Q1

REPORT INFORMATION
  Report Type: Spontaneous
  Country: CA (occurrence: CA)
  Receive Date: 20210712
  Receipt Date: 20230316
  Transmission Date: 20230417
  Serious: Yes (Death, Life-Threatening, Hospitalization, Disabling, Other)
  Sender: FDA-Public Use
  Company Number: CA-BAYER-2021-167750

PATIENT
  Age: 44 Year
  Sex: Female
  Weight: 97 kg

DRUGS (45)
  1. NAPROXEN SODIUM [Suspect]
     Active Substance: NAPROXEN SODIUM
     Indication: Rheumatoid arthritis
     Dosage: 1 DF, QD
     Route: 065
  2. NAPROXEN [Concomitant]
     Active Substance: NAPROXEN
     Indication: Product used for unknown indication
  3. IBUPROFEN [Concomitant]
     Active Substance: IBUPROFEN
     Indication: Product used for unknown indication
  4. CETIRIZINE HYDROCHLORIDE\PSEUDOEPHEDRINE HYDROCHLORIDE [Suspect]
     Active Substance: CETIRIZINE HYDROCHLORIDE\PSEUDOEPHEDRINE HYDROCHLORIDE
  5. CIMZIA [Suspect]
     Active Substance: CERTOLIZUMAB PEGOL
  6. ARAVA [Suspect]
     Active Substance: LEFLUNOMIDE
  7. METHOTREXATE SODIUM [Suspect]
     Active Substance: METHOTREXATE SODIUM
  8. ORENCIA [Suspect]
     Active Substance: ABATACEPT
  9. ALENDRONIC ACID [Suspect]
     Active Substance: ALENDRONIC ACID
  10. CALCIUM GLUBIONATE [Suspect]
     Active Substance: CALCIUM GLUBIONATE
  11. CALCIUM [Suspect]
     Active Substance: CALCIUM
  12. VITAMIN D3 [Suspect]
     Active Substance: CHOLECALCIFEROL
  13. DICLOFENAC SODIUM [Suspect]
     Active Substance: DICLOFENAC SODIUM
  14. PHTHALYLSULFATHIAZOLE [Suspect]
     Active Substance: PHTHALYLSULFATHIAZOLE
  15. PREDNISONE [Suspect]
     Active Substance: PREDNISONE
  16. PANTOPRAZOLE SODIUM ANHYDROUS [Concomitant]
     Active Substance: PANTOPRAZOLE SODIUM ANHYDROUS
  17. CALCIUM GLUCONATE [Concomitant]
     Active Substance: CALCIUM GLUCONATE
  18. RAMIPRIL [Concomitant]
     Active Substance: RAMIPRIL
  19. ACTEMRA [Suspect]
     Active Substance: TOCILIZUMAB
  20. CERTOLIZUMAB PEGOL [Suspect]
     Active Substance: CERTOLIZUMAB PEGOL
  21. SECUKINUMAB [Suspect]
     Active Substance: SECUKINUMAB
  22. ERELZI [Suspect]
     Active Substance: ETANERCEPT-SZZS
  23. HYDROCORTISONE [Suspect]
     Active Substance: HYDROCORTISONE
  24. KEVZARA [Suspect]
     Active Substance: SARILUMAB
  25. SULFASALAZINE [Concomitant]
     Active Substance: SULFASALAZINE
  26. XELJANZ [Suspect]
     Active Substance: TOFACITINIB CITRATE
  27. FOLIC ACID [Suspect]
     Active Substance: FOLIC ACID
  28. RITUXIMAB [Suspect]
     Active Substance: RITUXIMAB
  29. CORTISONE ACETATE [Suspect]
     Active Substance: CORTISONE ACETATE
  30. COSENTYX [Suspect]
     Active Substance: SECUKINUMAB
  31. SULFASALAZINE [Suspect]
     Active Substance: SULFASALAZINE
  32. ACETAMINOPHEN [Concomitant]
     Active Substance: ACETAMINOPHEN
  33. LEFLUNOMIDE [Suspect]
     Active Substance: LEFLUNOMIDE
  34. STELARA [Suspect]
     Active Substance: USTEKINUMAB
  35. VITAMIN C [Suspect]
     Active Substance: ASCORBIC ACID
  36. CALCIUM CARBONATE [Suspect]
     Active Substance: CALCIUM CARBONATE
  37. DESOXIMETASONE [Suspect]
     Active Substance: DESOXIMETASONE
  38. HYDROXYCHLOROQUINE SULFATE [Suspect]
     Active Substance: HYDROXYCHLOROQUINE SULFATE
  39. TOCILIZUMAB [Suspect]
     Active Substance: TOCILIZUMAB
  40. QUETIAPINE FUMARATE [Concomitant]
     Active Substance: QUETIAPINE FUMARATE
  41. FOSAMAX [Suspect]
     Active Substance: ALENDRONATE SODIUM
  42. ADALIMUMAB [Suspect]
     Active Substance: ADALIMUMAB
  43. CETIRIZINE HYDROCHLORIDE [Suspect]
     Active Substance: CETIRIZINE HYDROCHLORIDE
  44. ENBREL [Suspect]
     Active Substance: ETANERCEPT
  45. REMICADE [Suspect]
     Active Substance: INFLIXIMAB

REACTIONS (57)
  - Lower respiratory tract infection [Fatal]
  - Adjustment disorder with depressed mood [Not Recovered/Not Resolved]
  - Breast cancer stage II [Not Recovered/Not Resolved]
  - Breast cancer stage III [Not Recovered/Not Resolved]
  - Contraindicated product administered [None]
  - Delirium [Not Recovered/Not Resolved]
  - Duodenal ulcer perforation [None]
  - Exposure during pregnancy [None]
  - Incorrect route of product administration [Not Recovered/Not Resolved]
  - Intentional product use issue [Not Recovered/Not Resolved]
  - Live birth [Not Recovered/Not Resolved]
  - Liver disorder [Recovered/Resolved]
  - Liver function test increased [Not Recovered/Not Resolved]
  - Liver injury [Not Recovered/Not Resolved]
  - Maternal exposure during pregnancy [Not Recovered/Not Resolved]
  - Off label use [Not Recovered/Not Resolved]
  - Pericarditis [Not Recovered/Not Resolved]
  - Pneumonia [Not Recovered/Not Resolved]
  - Pregnancy [None]
  - Prescribed overdose [Not Recovered/Not Resolved]
  - Prescribed underdose [Not Recovered/Not Resolved]
  - Product use in unapproved indication [Not Recovered/Not Resolved]
  - Product use issue [Not Recovered/Not Resolved]
  - Systemic lupus erythematosus [Not Recovered/Not Resolved]
  - Therapy non-responder [Not Recovered/Not Resolved]
  - Ear pain [None]
  - Rheumatoid arthritis [Not Recovered/Not Resolved]
  - Drug ineffective [Not Recovered/Not Resolved]
  - Adverse drug reaction [Not Recovered/Not Resolved]
  - Anti-cyclic citrullinated peptide antibody positive [Not Recovered/Not Resolved]
  - Arthralgia [Not Recovered/Not Resolved]
  - Condition aggravated [Not Recovered/Not Resolved]
  - Discomfort [Not Recovered/Not Resolved]
  - Drug intolerance [Not Recovered/Not Resolved]
  - Hand deformity [Not Recovered/Not Resolved]
  - Helicobacter infection [Not Recovered/Not Resolved]
  - Hepatic enzyme increased [Not Recovered/Not Resolved]
  - Hypersensitivity [Not Recovered/Not Resolved]
  - Infusion related reaction [Not Recovered/Not Resolved]
  - Joint swelling [Not Recovered/Not Resolved]
  - Musculoskeletal stiffness [Not Recovered/Not Resolved]
  - Rash [Not Recovered/Not Resolved]
  - Rheumatoid factor positive [Not Recovered/Not Resolved]
  - Swelling [Not Recovered/Not Resolved]
  - Synovitis [Not Recovered/Not Resolved]
  - Therapeutic product effect decreased [Not Recovered/Not Resolved]
  - Treatment failure [Not Recovered/Not Resolved]
  - Wound [Not Recovered/Not Resolved]
  - Abdominal discomfort [Not Recovered/Not Resolved]
  - Alopecia [Not Recovered/Not Resolved]
  - Arthropathy [Not Recovered/Not Resolved]
  - Fatigue [Not Recovered/Not Resolved]
  - Glossodynia [Not Recovered/Not Resolved]
  - Liver injury [Not Recovered/Not Resolved]
  - Pain [Not Recovered/Not Resolved]
  - Pemphigus [Not Recovered/Not Resolved]
  - Psoriatic arthropathy [Not Recovered/Not Resolved]
